FAERS Safety Report 5905828-4 (Version None)
Quarter: 2008Q4

REPORT INFORMATION
  Report Type: 
  Country: None (occurrence: None)
  Receive Date: 20081002
  Receipt Date: 20080925
  Transmission Date: 20090506
  Serious: Yes (Life-Threatening, Hospitalization)
  Sender: FDA-Public Use
  Company Number: D0058842A

PATIENT
  Age: 83 Year
  Sex: Female
  Weight: 68 kg

DRUGS (1)
  1. ADARTREL [Suspect]
     Route: 065

REACTIONS (3)
  - BRADYARRHYTHMIA [None]
  - DIARRHOEA [None]
  - RENAL FAILURE [None]
